FAERS Safety Report 7880591-9 (Version None)
Quarter: 2011Q4

REPORT INFORMATION
  Report Type: 
  Country: None (occurrence: None)
  Receive Date: 20111101
  Receipt Date: 20111021
  Transmission Date: 20120403
  Serious: Yes (Other)
  Sender: FDA-Public Use
  Company Number: US-BAYER-2011-052456

PATIENT
  Sex: Female
  Weight: 74.83 kg

DRUGS (5)
  1. YAZ [Suspect]
  2. CYMBALTA [Concomitant]
     Dosage: 60 MG, UNK
  3. ALPRAZOLAM [Concomitant]
     Dosage: 0.5 MG, UNK
  4. QUALAQUIN 324 MG [Concomitant]
     Dosage: 324 MG, UNK
  5. CLONAZEPAM [Concomitant]
     Dosage: 1 MG, UNK

REACTIONS (9)
  - CHOLECYSTITIS CHRONIC [None]
  - UTERINE NEOPLASM [None]
  - UTERINE LEIOMYOMA [None]
  - PAIN [None]
  - UMBILICAL HERNIA [None]
  - MENTAL DISORDER [None]
  - ANXIETY [None]
  - GALLBLADDER DISORDER [None]
  - DEPRESSION [None]
